FAERS Safety Report 24435009 (Version 1)
Quarter: 2024Q4

REPORT INFORMATION
  Report Type: Spontaneous
  Country: US (occurrence: US)
  Receive Date: 20241014
  Receipt Date: 20241014
  Transmission Date: 20250114
  Serious: No
  Sender: ABBVIE
  Company Number: US-ABBVIE-5956315

PATIENT
  Sex: Male

DRUGS (1)
  1. NAMENDA XR [Suspect]
     Active Substance: MEMANTINE HYDROCHLORIDE
     Indication: Dementia Alzheimer^s type
     Dosage: ADMINISTERED TO THE PATIENT THROUGH A FEEDING/PEG TUBE
     Route: 065

REACTIONS (2)
  - Wrong technique in product usage process [Unknown]
  - Product use complaint [Unknown]

NARRATIVE: CASE EVENT DATE: 20240401
